FAERS Safety Report 5019764-1 (Version None)
Quarter: 2006Q2

REPORT INFORMATION
  Report Type: 
  Country: None (occurrence: None)
  Receive Date: 20060601
  Receipt Date: 20060519
  Transmission Date: 20061013
  Serious: Yes (Other)
  Sender: FDA-Public Use
  Company Number: 2006066142

PATIENT
  Age: 38 Year
  Sex: Female

DRUGS (5)
  1. AZITHROMYCIN [Suspect]
     Indication: ILL-DEFINED DISORDER
     Dosage: 500 MG, ORAL
     Route: 048
     Dates: start: 20060515, end: 20060515
  2. ALESION (EPINASTINE HYDROCHLORIDE) [Concomitant]
  3. MEDICON (DEXTROMETHORPHAN HYDROBROMIDE) [Concomitant]
  4. PL (PYRIDOXAL) [Concomitant]
  5. MUCOSTA (REBAMIPIDE) [Concomitant]

REACTIONS (7)
  - ABDOMINAL PAIN [None]
  - CONTUSION [None]
  - DIARRHOEA [None]
  - FALL [None]
  - LOSS OF CONSCIOUSNESS [None]
  - NAUSEA [None]
  - PYREXIA [None]
